FAERS Safety Report 4911881-7 (Version None)
Quarter: 2006Q1

REPORT INFORMATION
  Report Type: 
  Country: None (occurrence: None)
  Receive Date: 20060215
  Receipt Date: 20060203
  Transmission Date: 20060701
  Serious: Yes (Disabling)
  Sender: FDA-Public Use
  Company Number: JP-JNJFOC-20060201043

PATIENT
  Age: 75 Year
  Sex: Female

DRUGS (5)
  1. TARIVID [Suspect]
     Indication: URINARY TRACT INFECTION
     Route: 048
     Dates: start: 20051221, end: 20051228
  2. DIOVAN [Concomitant]
     Indication: HYPERTENSION
     Route: 048
     Dates: start: 20050101
  3. COHEMIN [Concomitant]
     Route: 030
     Dates: start: 20050101
  4. LESCOL [Concomitant]
     Route: 048
     Dates: start: 20050101
  5. SOTALOL HCL [Concomitant]
     Indication: HYPERTENSION
     Route: 048
     Dates: start: 20050101

REACTIONS (4)
  - FEELING ABNORMAL [None]
  - HEARING IMPAIRED [None]
  - MALAISE [None]
  - TINNITUS [None]
